FAERS Safety Report 7720253-1 (Version None)
Quarter: 2011Q3

REPORT INFORMATION
  Report Type: 
  Country: None (occurrence: None)
  Receive Date: 20110826
  Receipt Date: 20110826
  Transmission Date: 20111222
  Serious: No
  Sender: FDA-Public Use
  Company Number: None

PATIENT

DRUGS (1)
  1. AMOXICILLIN [Suspect]
     Dates: start: 20110808

REACTIONS (2)
  - PRODUCT ODOUR ABNORMAL [None]
  - HEADACHE [None]
